FAERS Safety Report 7542230-6 (Version None)
Quarter: 2011Q2

REPORT INFORMATION
  Report Type: 
  Country: None (occurrence: None)
  Receive Date: 20110613
  Receipt Date: 20110601
  Transmission Date: 20111010
  Serious: Yes (Hospitalization)
  Sender: FDA-Public Use
  Company Number: AT-PFIZER INC-2011125172

PATIENT
  Age: 29 Year
  Sex: Male
  Weight: 67 kg

DRUGS (9)
  1. SERTRALINE HYDROCHLORIDE [Suspect]
     Dosage: 150 MG, UNK
     Dates: start: 20110328, end: 20110329
  2. TRAZODONE HCL [Concomitant]
     Dosage: 150 MG, UNK
     Dates: start: 20110226, end: 20110405
  3. PANTOPRAZOLE SODIUM [Suspect]
     Dosage: 20 MG, UNK
     Route: 048
     Dates: start: 20110227, end: 20110401
  4. SERTRALINE HYDROCHLORIDE [Suspect]
     Dosage: 100 MG, UNK
     Dates: start: 20110308, end: 20110313
  5. SERTRALINE HYDROCHLORIDE [Suspect]
     Dosage: 50 MG, UNK
     Dates: start: 20110219, end: 20110307
  6. SERTRALINE HYDROCHLORIDE [Suspect]
     Dosage: 150 MG, UNK
     Dates: start: 20110314, end: 20110321
  7. SERTRALINE HYDROCHLORIDE [Suspect]
     Dosage: 100 MG, UNK
     Dates: start: 20110322, end: 20110327
  8. SEROQUEL [Concomitant]
     Dosage: 75 MG, UNK
     Dates: start: 20110309
  9. SERTRALINE HYDROCHLORIDE [Suspect]
     Dosage: 100 MG, UNK
     Dates: start: 20110330, end: 20110401

REACTIONS (3)
  - DIARRHOEA [None]
  - PANIC DISORDER [None]
  - DEPRESSION [None]
